FAERS Safety Report 23634789 (Version 1)
Quarter: 2024Q1

REPORT INFORMATION
  Report Type: Spontaneous
  Country: JP (occurrence: JP)
  Receive Date: 20240315
  Receipt Date: 20240315
  Transmission Date: 20240410
  Serious: Yes (Hospitalization)
  Sender: FDA-Public Use
  Company Number: JP-GSKNCCC-Case-01931792_AE-81204

PATIENT

DRUGS (1)
  1. SERETIDE [Suspect]
     Active Substance: FLUTICASONE PROPIONATE\SALMETEROL XINAFOATE
     Dosage: AEROSOL 125, 1 INHALATION/DOSE, IN MORNING AND EVENING

REACTIONS (2)
  - Chronic obstructive pulmonary disease [Unknown]
  - Underdose [Unknown]
